FAERS Safety Report 7632844-7 (Version None)
Quarter: 2011Q3

REPORT INFORMATION
  Report Type: 
  Country: None (occurrence: None)
  Receive Date: 20110725
  Receipt Date: 20110711
  Transmission Date: 20111222
  Serious: Yes (Hospitalization)
  Sender: FDA-Public Use
  Company Number: PHHY2011FR62738

PATIENT
  Sex: Female

DRUGS (2)
  1. APROVEL [Concomitant]
  2. RASILEZ [Suspect]
     Dosage: UNK
     Dates: start: 20110615

REACTIONS (3)
  - HYPOTENSION [None]
  - ASTHENIA [None]
  - RENAL FAILURE CHRONIC [None]
